FAERS Safety Report 24549602 (Version 1)
Quarter: 2024Q4

REPORT INFORMATION
  Report Type: Spontaneous
  Country: US (occurrence: None)
  Receive Date: 20241024
  Receipt Date: 20241024
  Transmission Date: 20250115
  Serious: Yes (Death)
  Sender: Public
  Company Number: None

PATIENT
  Age: 84 Year
  Sex: Female

DRUGS (19)
  1. PIRFENIDONE [Suspect]
     Active Substance: PIRFENIDONE
     Indication: Interstitial lung disease
     Dosage: FREQUENCY : 3 TIMES A DAY;?
     Route: 048
     Dates: start: 20181102, end: 20230929
  2. METOCLOPRAMIDE [Concomitant]
     Active Substance: METOCLOPRAMIDE
  3. HALDOL [Concomitant]
     Active Substance: HALOPERIDOL
  4. DEXAMETHASONE [Concomitant]
     Active Substance: DEXAMETHASONE
  5. METHADONE [Concomitant]
     Active Substance: METHADONE HYDROCHLORIDE
  6. ONDANSETRON [Concomitant]
     Active Substance: ONDANSETRON
  7. GABAPENTIN [Concomitant]
     Active Substance: GABAPENTIN
  8. AMLODIPINE [Concomitant]
     Active Substance: AMLODIPINE BESYLATE
  9. albuterol neb soln [Concomitant]
  10. BENZONATATE [Concomitant]
     Active Substance: BENZONATATE
  11. ACETAMINOPHEN [Concomitant]
     Active Substance: ACETAMINOPHEN
  12. ATROPINE [Concomitant]
     Active Substance: ATROPINE
  13. BISACODYL [Concomitant]
     Active Substance: BISACODYL
  14. SENNA [Concomitant]
     Active Substance: SENNA LEAF\SENNOSIDES\SENNOSIDES A AND B
  15. ALBUTEROL [Concomitant]
     Active Substance: ALBUTEROL
  16. OMEPRAZOLE [Concomitant]
     Active Substance: OMEPRAZOLE
  17. CRANBERRY [Concomitant]
     Active Substance: CRANBERRY
  18. DEXTROMETHORPHAN\GUAIFENESIN [Concomitant]
     Active Substance: DEXTROMETHORPHAN\GUAIFENESIN
  19. LEVOTHYROXINE [Concomitant]
     Active Substance: LEVOTHYROXINE

REACTIONS (2)
  - Acute respiratory failure [None]
  - Respiratory failure [None]

NARRATIVE: CASE EVENT DATE: 20230929
